FAERS Safety Report 6517889-2 (Version None)
Quarter: 2009Q4

REPORT INFORMATION
  Report Type: 
  Country: None (occurrence: None)
  Receive Date: 20091223
  Receipt Date: 20091223
  Transmission Date: 20100525
  Serious: No
  Sender: FDA-Public Use
  Company Number: None

PATIENT
  Age: 56 Year
  Sex: Female

DRUGS (1)
  1. LAMOTRIGINE [Suspect]
     Indication: MOOD SWINGS
     Dosage: 1 TABLET DAILY BY MOUTH
     Route: 048

REACTIONS (3)
  - DYSKINESIA [None]
  - MUSCLE TWITCHING [None]
  - PRODUCT SUBSTITUTION ISSUE [None]
